FAERS Safety Report 6968202-8 (Version None)
Quarter: 2010Q3

REPORT INFORMATION
  Report Type: 
  Country: None (occurrence: None)
  Receive Date: 20100907
  Receipt Date: 20100827
  Transmission Date: 20110219
  Serious: Yes (Other)
  Sender: FDA-Public Use
  Company Number: US-ASTRAZENECA-2010SE35725

PATIENT
  Age: 7665 Day
  Sex: Female
  Weight: 67.1 kg

DRUGS (4)
  1. SYMBICORT [Suspect]
     Indication: ASTHMA
     Dosage: 160/4.5
     Route: 055
     Dates: start: 20100727, end: 20100727
  2. ROBITUSSON WITH CODEINE [Concomitant]
     Indication: COUGH
     Route: 048
     Dates: start: 20100727
  3. PULMICORT [Concomitant]
     Indication: ASTHMA
  4. ALBUTEROL [Concomitant]
     Indication: ASTHMA
     Dosage: PRN

REACTIONS (2)
  - ASTHENIA [None]
  - PAIN IN EXTREMITY [None]
